FAERS Safety Report 19074477 (Version 1)
Quarter: 2021Q1

REPORT INFORMATION
  Report Type: Spontaneous
  Country: FR (occurrence: FR)
  Receive Date: 20210330
  Receipt Date: 20210330
  Transmission Date: 20210420
  Serious: Yes (Hospitalization)
  Sender: FDA-Public Use
  Company Number: FR-PFIZER INC-2021310597

PATIENT
  Age: 22 Year
  Sex: Male
  Weight: 66 kg

DRUGS (2)
  1. ALPRAZOLAM. [Suspect]
     Active Substance: ALPRAZOLAM
     Dosage: 4.5 MG, SINGLE
     Route: 048
     Dates: start: 20210204, end: 20210204
  2. TRAMADOL. [Suspect]
     Active Substance: TRAMADOL
     Dosage: 3000 MG, SINGLE
     Route: 048
     Dates: start: 20210204, end: 20210204

REACTIONS (5)
  - Intentional overdose [Unknown]
  - Bradypnoea [Recovered/Resolved]
  - Urinary retention [Recovered/Resolved]
  - Poisoning deliberate [Recovered/Resolved]
  - Altered state of consciousness [Recovered/Resolved]

NARRATIVE: CASE EVENT DATE: 20210204
